FAERS Safety Report 4619289-9 (Version None)
Quarter: 2005Q1

REPORT INFORMATION
  Report Type: 
  Country: None (occurrence: None)
  Receive Date: 20050318
  Receipt Date: 20050318
  Transmission Date: 20050727
  Serious: Yes (Hospitalization)
  Sender: FDA-Public Use
  Company Number: None

PATIENT
  Sex: Female
  Weight: 76.2043 kg

DRUGS (6)
  1. BETAXOLOL [Suspect]
     Indication: HYPERTENSION
     Dosage: 10 MG PO QD [PRIOR TO ADMISSION]
     Route: 048
  2. COZAAR [Concomitant]
  3. SYNTHROID [Concomitant]
  4. LIQUID KCL [Concomitant]
  5. AXID [Concomitant]
  6. TUMS [Concomitant]

REACTIONS (1)
  - LOSS OF CONSCIOUSNESS [None]
